FAERS Safety Report 6360796-9 (Version None)
Quarter: 2009Q3

REPORT INFORMATION
  Report Type: 
  Country: None (occurrence: None)
  Receive Date: 20090918
  Receipt Date: 20090909
  Transmission Date: 20100115
  Serious: Yes (Hospitalization)
  Sender: FDA-Public Use
  Company Number: CA-WYE-G04433609

PATIENT
  Age: 70 Year
  Sex: Female
  Weight: 61.4 kg

DRUGS (1)
  1. TEMSIROLIMUS [Suspect]
     Indication: ENDOMETRIAL CANCER
     Dosage: 25 MG DAYS 1, 8, 15, 22 EVERY 4 WEEKS
     Route: 042
     Dates: start: 20060926, end: 20061107

REACTIONS (7)
  - BLOOD POTASSIUM DECREASED [None]
  - DEHYDRATION [None]
  - DIARRHOEA [None]
  - FATIGUE [None]
  - HYPONATRAEMIA [None]
  - NAUSEA [None]
  - VOMITING [None]
